FAERS Safety Report 6993063-0 (Version None)
Quarter: 2010Q3

REPORT INFORMATION
  Report Type: 
  Country: None (occurrence: None)
  Receive Date: 20100917
  Receipt Date: 20100611
  Transmission Date: 20110219
  Serious: Yes (Hospitalization, Other)
  Sender: FDA-Public Use
  Company Number: US-ASTRAZENECA-2010SE24017

PATIENT
  Age: 45 Year
  Sex: Female

DRUGS (5)
  1. SEROQUEL [Suspect]
     Indication: AFFECTIVE DISORDER
     Route: 048
     Dates: start: 20070201
  2. SEROQUEL [Suspect]
     Route: 048
  3. EFFEXOR [Concomitant]
     Indication: AFFECTIVE DISORDER
  4. GLUCOPHAGE [Concomitant]
     Indication: DIABETES MELLITUS
  5. MELOXICAM [Concomitant]
     Indication: ARTHRITIS

REACTIONS (8)
  - AMNESIA [None]
  - EMOTIONAL DISORDER [None]
  - INCORRECT DOSE ADMINISTERED [None]
  - INJURY [None]
  - RESTLESS LEGS SYNDROME [None]
  - SLEEP-RELATED EATING DISORDER [None]
  - SOMNOLENCE [None]
  - SUICIDE ATTEMPT [None]
